FAERS Safety Report 19462465 (Version 2)
Quarter: 2021Q3

REPORT INFORMATION
  Report Type: Spontaneous
  Country: JP (occurrence: JP)
  Receive Date: 20210625
  Receipt Date: 20210821
  Transmission Date: 20211014
  Serious: Yes (Death, Other)
  Sender: FDA-Public Use
  Company Number: JP-AMGEN-JPNSP2021096912

PATIENT
  Age: 69 Year
  Sex: Male

DRUGS (1)
  1. BLINCYTO [Suspect]
     Active Substance: BLINATUMOMAB
     Indication: B PRECURSOR TYPE ACUTE LEUKAEMIA
     Dosage: 28 MICROGRAM, QD
     Route: 041
     Dates: start: 20210310, end: 2021

REACTIONS (3)
  - Acute lymphocytic leukaemia recurrent [Fatal]
  - Diffuse large B-cell lymphoma recurrent [Fatal]
  - Metastases to chest wall [Fatal]

NARRATIVE: CASE EVENT DATE: 2021
